FAERS Safety Report 16527371 (Version 3)
Quarter: 2019Q3

REPORT INFORMATION
  Report Type: Spontaneous
  Country: CN (occurrence: CN)
  Receive Date: 20190704
  Receipt Date: 20190712
  Transmission Date: 20191004
  Serious: Yes (Other)
  Sender: FDA-Public Use
  Company Number: CN-ASTRAZENECA-2019SE95039

PATIENT
  Sex: Female

DRUGS (4)
  1. TAGRISSO [Suspect]
     Active Substance: OSIMERTINIB
     Indication: METASTASES TO LIVER
     Route: 048
     Dates: start: 20181110
  2. ICOTINIB [Concomitant]
     Active Substance: ICOTINIB
  3. NEXIUM [Concomitant]
     Active Substance: ESOMEPRAZOLE MAGNESIUM
     Indication: ABDOMINAL DISCOMFORT
  4. TAGRISSO [Suspect]
     Active Substance: OSIMERTINIB
     Indication: METASTASES TO LIVER
     Route: 048
     Dates: start: 201902, end: 201906

REACTIONS (9)
  - Metastasis [Not Recovered/Not Resolved]
  - Metastases to central nervous system [Recovering/Resolving]
  - Malignant neoplasm progression [Not Recovered/Not Resolved]
  - Pain [Recovered/Resolved]
  - Metastases to lung [Not Recovered/Not Resolved]
  - Metastases to bone [Unknown]
  - Mental impairment [Unknown]
  - Movement disorder [Unknown]
  - Chest pain [Unknown]
